FAERS Safety Report 15957077 (Version 4)
Quarter: 2019Q2

REPORT INFORMATION
  Report Type: Spontaneous
  Country: US (occurrence: US)
  Receive Date: 20190213
  Receipt Date: 20190426
  Transmission Date: 20190711
  Serious: Yes (Other)
  Sender: FDA-Public Use
  Company Number: US-GLAXOSMITHKLINE-US2018237037

PATIENT
  Sex: Male

DRUGS (2)
  1. CITRUCEL [Suspect]
     Active Substance: METHYLCELLULOSE (4000 MPA.S)
     Indication: PRODUCT USED FOR UNKNOWN INDICATION
     Dosage: UNK
  2. CITRUCEL [Suspect]
     Active Substance: METHYLCELLULOSE (4000 MPA.S)
     Dosage: UNK

REACTIONS (6)
  - Product complaint [Unknown]
  - Gastric disorder [Unknown]
  - Gastrointestinal disorder [Unknown]
  - Incorrect product administration duration [Unknown]
  - Colon operation [Unknown]
  - Abdominal discomfort [Unknown]
